FAERS Safety Report 10439924 (Version 1)
Quarter: 2014Q3

REPORT INFORMATION
  Report Type: Spontaneous
  Country: US (occurrence: US)
  Receive Date: 20140908
  Receipt Date: 20140908
  Transmission Date: 20150326
  Serious: No
  Sender: FDA-Public Use
  Company Number: US-BRISTOL-MYERS SQUIBB COMPANY-19383520

PATIENT
  Age: 88 Year
  Sex: Female
  Weight: 58.96 kg

DRUGS (1)
  1. ABILIFY [Suspect]
     Active Substance: ARIPIPRAZOLE
     Indication: DEPRESSION
     Dosage: LAST DOSE 5MG
     Dates: start: 201301

REACTIONS (3)
  - Fatigue [Unknown]
  - Decreased appetite [Unknown]
  - Drug ineffective [Unknown]
